FAERS Safety Report 8102682-X (Version None)
Quarter: 2012Q1

REPORT INFORMATION
  Report Type: 
  Country: None (occurrence: None)
  Receive Date: 20120126
  Receipt Date: 20120117
  Transmission Date: 20120608
  Serious: Yes (Other)
  Sender: FDA-Public Use
  Company Number: TPA2011A07207

PATIENT
  Age: 57 Year
  Sex: Male
  Weight: 63.5036 kg

DRUGS (3)
  1. NORVASC [Suspect]
     Indication: HYPERTENSION
     Dosage: 5 MG, 1 IN 1 D, ORAL
     Route: 048
     Dates: start: 20110816, end: 20111011
  2. CATAPRES [Suspect]
     Indication: HYPERTENSION
     Dosage: 0.3 MG, 1 IN 1 D, ORAL
     Route: 048
     Dates: start: 20070101
  3. EDARBI [Suspect]
     Indication: HYPERTENSION
     Dosage: 80 MG, 1 IN 1 D, ORAL
     Route: 048
     Dates: start: 20110816, end: 20111011

REACTIONS (5)
  - RENAL IMPAIRMENT [None]
  - SYNCOPE [None]
  - FATIGUE [None]
  - DIZZINESS [None]
  - HYPOTENSION [None]
